FAERS Safety Report 18542971 (Version 7)
Quarter: 2021Q3

REPORT INFORMATION
  Report Type: Report from Study
  Country: JP (occurrence: JP)
  Receive Date: 20201125
  Receipt Date: 20210930
  Transmission Date: 20211014
  Serious: Yes (Hospitalization)
  Sender: FDA-Public Use
  Company Number: JP-ROCHE-2713728

PATIENT
  Age: 71 Year
  Sex: Female
  Weight: 44 kg

DRUGS (29)
  1. FLORID [Concomitant]
     Active Substance: MICONAZOLE
     Indication: MUCOSAL INFECTION
     Dosage: ORAL GEL
     Route: 048
     Dates: start: 20200707, end: 20200727
  2. NOVORAPID [Concomitant]
     Active Substance: INSULIN ASPART
     Indication: DIABETES MELLITUS MANAGEMENT
     Dates: start: 20201117, end: 20201117
  3. OBINUTUZUMAB. [Suspect]
     Active Substance: OBINUTUZUMAB
     Indication: FOLLICULAR LYMPHOMA
     Dosage: DATE OF MOST RECENT DOSE OF OBINUTUZUMAB PRIOR TO AE/SAE ONSET 24/AUG/2020: 1000 MG
     Route: 042
     Dates: start: 20200311
  4. VICCLOX [Concomitant]
     Active Substance: ACYCLOVIR SODIUM
     Indication: INFECTION PROPHYLAXIS
     Dates: start: 20200311, end: 20201019
  5. FLORID [Concomitant]
     Active Substance: MICONAZOLE
     Dates: start: 20201016, end: 20201108
  6. PROPETO [Concomitant]
     Active Substance: PETROLATUM
     Indication: ANGULAR CHEILITIS
     Dates: start: 20200707
  7. XYLOCAINE [Concomitant]
     Active Substance: LIDOCAINE HYDROCHLORIDE
     Dates: start: 20201117, end: 20201117
  8. DAIPHEN [Concomitant]
     Active Substance: SULFAMETHOXAZOLE\TRIMETHOPRIM
     Indication: INFECTION PROPHYLAXIS
     Dates: start: 20200312, end: 20201019
  9. DAIPHEN [Concomitant]
     Active Substance: SULFAMETHOXAZOLE\TRIMETHOPRIM
     Dates: start: 20201111, end: 20201116
  10. PRIMPERAN [Concomitant]
     Active Substance: METOCLOPRAMIDE HYDROCHLORIDE
     Indication: NAUSEA
     Dates: start: 20200316, end: 20200912
  11. VICCLOX [Concomitant]
     Active Substance: ACYCLOVIR SODIUM
     Dates: start: 20201111, end: 20201116
  12. DORMICUM [Concomitant]
     Dates: start: 20201117, end: 20201117
  13. FENTANYL. [Concomitant]
     Active Substance: FENTANYL
     Dates: start: 20201117, end: 20201117
  14. XYLOCAINE [Concomitant]
     Active Substance: LIDOCAINE HYDROCHLORIDE
     Dates: start: 20201117, end: 20201117
  15. ISOTONIC SODIUM CHLORIDE SOLUTION [Concomitant]
     Active Substance: SODIUM CHLORIDE
     Dates: start: 20201117, end: 20201117
  16. PRIMPERAN [Concomitant]
     Active Substance: METOCLOPRAMIDE HYDROCHLORIDE
     Indication: DYSPEPSIA
     Dates: start: 20201116
  17. BENDAMUSTINE [Suspect]
     Active Substance: BENDAMUSTINE
     Indication: FOLLICULAR LYMPHOMA
     Dosage: DATE OF MOST RECENT DOSE OF OBINUTUZUMAB PRIOR TO AE/SAE ONSET 25/AUG/2020
     Route: 042
     Dates: start: 20200312
  18. NEXIUM [Concomitant]
     Active Substance: ESOMEPRAZOLE MAGNESIUM
     Indication: GASTROOESOPHAGEAL REFLUX DISEASE
     Dates: start: 20200619
  19. MOSAPRIDE [Concomitant]
     Active Substance: MOSAPRIDE
     Indication: DYSPEPSIA
     Dates: start: 20200619
  20. FELBINAC [Concomitant]
     Active Substance: FELBINAC
     Indication: BONE CONTUSION
     Dates: start: 20200909, end: 20200930
  21. DORMICUM [Concomitant]
     Dates: start: 20200619, end: 20200619
  22. FLUMAZENIL. [Concomitant]
     Active Substance: FLUMAZENIL
     Dates: start: 20201117, end: 20201117
  23. XYLOCAINE [Concomitant]
     Active Substance: LIDOCAINE HYDROCHLORIDE
     Dates: start: 20201117, end: 20201117
  24. HYALEIN [Concomitant]
     Active Substance: HYALURONATE SODIUM
     Indication: DRY EYE
  25. MAGNESIUM OXIDE. [Concomitant]
     Active Substance: MAGNESIUM OXIDE
     Indication: CONSTIPATION
     Dates: start: 20200817
  26. CARBOCISTEINE [Concomitant]
     Active Substance: CARBOCYSTEINE
     Indication: ATELECTASIS
     Dates: start: 20200817
  27. ATOLANT [Concomitant]
     Indication: ANGULAR CHEILITIS
     Dates: start: 20200707, end: 20201108
  28. PYRIDOXAL [Concomitant]
     Active Substance: PYRIDOXAL
     Indication: ANGULAR CHEILITIS
     Dates: start: 20201016
  29. FLUMAZENIL. [Concomitant]
     Active Substance: FLUMAZENIL
     Dates: start: 20200619, end: 20200619

REACTIONS (1)
  - Obliterative bronchiolitis [Recovering/Resolving]

NARRATIVE: CASE EVENT DATE: 20201027
